FAERS Safety Report 12330456 (Version 1)
Quarter: 2016Q2

REPORT INFORMATION
  Report Type: Spontaneous
  Country: US (occurrence: US)
  Receive Date: 20160504
  Receipt Date: 20160504
  Transmission Date: 20160815
  Serious: No
  Sender: FDA-Public Use
  Company Number: US-GLENMARK PHARMACEUTICALS INC, USA.-2015GMK017788

PATIENT
  Age: 47 Year
  Sex: Male

DRUGS (2)
  1. TOPIRAMATE. [Suspect]
     Active Substance: TOPIRAMATE
     Indication: AGGRESSION
     Dosage: UNK
  2. TOPIRAMATE. [Suspect]
     Active Substance: TOPIRAMATE
     Indication: SELF INJURIOUS BEHAVIOUR

REACTIONS (1)
  - Drug ineffective for unapproved indication [Unknown]
